FAERS Safety Report 5956811-4 (Version None)
Quarter: 2008Q4

REPORT INFORMATION
  Report Type: 
  Country: None (occurrence: None)
  Receive Date: 20081114
  Receipt Date: 20081114
  Transmission Date: 20090506
  Serious: No
  Sender: FDA-Public Use
  Company Number: None

PATIENT
  Sex: Male
  Weight: 96.1626 kg

DRUGS (5)
  1. TAMSULOSIN HCL [Suspect]
     Indication: NOCTURIA
     Dosage: 0.4 MG QHS P.O.
     Route: 048
  2. LOSARTAN POTASSIUM [Concomitant]
  3. ALBUTEROL [Concomitant]
  4. METOPROLOL TARTRATE [Concomitant]
  5. AMLODIPINE [Concomitant]

REACTIONS (2)
  - CONDITION AGGRAVATED [None]
  - GOUT [None]
